FAERS Safety Report 9916069 (Version 1)
Quarter: 2014Q1

REPORT INFORMATION
  Report Type: Spontaneous
  Country: US (occurrence: None)
  Receive Date: 20140220
  Receipt Date: 20140220
  Transmission Date: 20141002
  Serious: No
  Sender: FDA-Public Use
  Company Number: None

PATIENT
  Age: 45 Year
  Sex: Male

DRUGS (2)
  1. GABAPENTIN [Suspect]
     Indication: PAIN
     Route: 048
     Dates: start: 20140213, end: 20140219
  2. BACLOFEN [Suspect]
     Dosage: AT BEDTIME
     Route: 048
     Dates: start: 20140213, end: 20140219

REACTIONS (1)
  - Rash [None]
